FAERS Safety Report 7082739-5 (Version None)
Quarter: 2010Q4

REPORT INFORMATION
  Report Type: 
  Country: None (occurrence: None)
  Receive Date: 20101104
  Receipt Date: 20101029
  Transmission Date: 20110411
  Serious: Yes (Death, Hospitalization)
  Sender: FDA-Public Use
  Company Number: US-SANOFI-AVENTIS-2010SA062651

PATIENT
  Age: 70 Year
  Sex: Male

DRUGS (7)
  1. JEVTANA KIT [Suspect]
     Indication: PROSTATE CANCER
     Route: 041
     Dates: start: 20100909, end: 20100909
  2. THERAPEUTIC RADIOPHARMACEUTICALS [Suspect]
     Dosage: TO HIP AREA
     Route: 065
  3. ALL OTHER THERAPEUTIC PRODUCTS [Concomitant]
  4. PREDNISONE [Concomitant]
     Route: 048
  5. LUPRON [Concomitant]
     Dosage: EVERY THREE MONTHS
     Route: 065
  6. MEGACE [Concomitant]
     Route: 048
     Dates: start: 20100601, end: 20100901
  7. INDOCIN [Concomitant]
     Route: 065
     Dates: start: 20100601, end: 20100901

REACTIONS (8)
  - ACUTE RESPIRATORY DISTRESS SYNDROME [None]
  - CARDIAC FAILURE CONGESTIVE [None]
  - CHRONIC OBSTRUCTIVE PULMONARY DISEASE [None]
  - NEUTROPENIA [None]
  - NEUTROPHIL COUNT DECREASED [None]
  - PROSTATE CANCER [None]
  - PULMONARY EMBOLISM [None]
  - RESPIRATORY FAILURE [None]
